FAERS Safety Report 14426464 (Version 1)
Quarter: 2018Q1

REPORT INFORMATION
  Report Type: Spontaneous
  Country: BR (occurrence: BR)
  Receive Date: 20180123
  Receipt Date: 20180123
  Transmission Date: 20180509
  Serious: Yes (Other)
  Sender: FDA-Public Use
  Company Number: BR-GLAXOSMITHKLINE-BR2018010891

PATIENT
  Sex: Male

DRUGS (2)
  1. NICORETTE [Suspect]
     Active Substance: NICOTINE
     Indication: SMOKING CESSATION THERAPY
     Dosage: UNK
     Route: 049
  2. NICORETTE [Suspect]
     Active Substance: NICOTINE
     Dosage: 1 DF, UNK
     Route: 049

REACTIONS (3)
  - Wrong technique in product usage process [Unknown]
  - Nicotine dependence [Not Recovered/Not Resolved]
  - Overdose [Unknown]
